FAERS Safety Report 20333980 (Version 1)
Quarter: 2022Q1

REPORT INFORMATION
  Report Type: Report from Study
  Country: US (occurrence: US)
  Receive Date: 20220113
  Receipt Date: 20220113
  Transmission Date: 20220423
  Serious: Yes (Death)
  Sender: FDA-Public Use
  Company Number: US-Taiho Oncology Inc-EU-2022-00071

PATIENT
  Sex: Female
  Weight: 38.136 kg

DRUGS (20)
  1. LONSURF [Suspect]
     Active Substance: TIPIRACIL HYDROCHLORIDE\TRIFLURIDINE
     Indication: Rectal cancer
     Dosage: UNKNOWN CYCLE
     Route: 048
     Dates: start: 20210911
  2. BEVACIZUMAB [Concomitant]
     Active Substance: BEVACIZUMAB
  3. CATAPRES [Concomitant]
     Active Substance: CLONIDINE HYDROCHLORIDE
  4. CHLORTHALIDONE [Concomitant]
     Active Substance: CHLORTHALIDONE
  5. DEXAMETHASONE [Concomitant]
     Active Substance: DEXAMETHASONE
  6. FLUOROURACIL [Concomitant]
     Active Substance: FLUOROURACIL
  7. FOSAPREPITANT [Concomitant]
     Active Substance: FOSAPREPITANT
  8. LEUCOVORIN [Concomitant]
     Active Substance: LEUCOVORIN
  9. MEGESTROL [Concomitant]
     Active Substance: MEGESTROL
  10. NARCAN [Concomitant]
     Active Substance: NALOXONE HYDROCHLORIDE
  11. ONDANSETRON [Concomitant]
     Active Substance: ONDANSETRON
  12. PERCOCET [Concomitant]
     Active Substance: ACETAMINOPHEN\OXYCODONE HYDROCHLORIDE
  13. PALONOSETRON [Concomitant]
     Active Substance: PALONOSETRON
  14. PENICILLIN V [Concomitant]
     Active Substance: PENICILLIN V
  15. PREDNISONE [Concomitant]
     Active Substance: PREDNISONE
  16. PROCHLORPERAZINE [Concomitant]
     Active Substance: PROCHLORPERAZINE
  17. AMLODIPINE [Concomitant]
     Active Substance: AMLODIPINE BESYLATE
  18. ATIVAN [Concomitant]
     Active Substance: LORAZEPAM
  19. CLONIDINE [Concomitant]
     Active Substance: CLONIDINE
  20. SERTRALINE [Concomitant]
     Active Substance: SERTRALINE HYDROCHLORIDE

REACTIONS (1)
  - Death [Fatal]
